FAERS Safety Report 7554814 (Version 2)
Quarter: 2012Q4

REPORT INFORMATION
  Report Type: 
  Country: GB (occurrence: GB)
  Receive Date: 20100826
  Receipt Date: 20121022
  Transmission Date: 20130627
  Serious: Yes (Death)
  Sender: FDA-Public Use
  Company Number: GB-TEVA-245633ISR

PATIENT
  Age: 47 Year
  Sex: Male

DRUGS (3)
  1. PAROXETINE [Suspect]
     Dosage: 60 Milligram Daily;
  2. ZAPONEX [Suspect]
     Route: 048
     Dates: start: 20050805, end: 20100318
  3. ZAPONEX [Suspect]
     Dates: start: 19971023, end: 20050804

REACTIONS (3)
  - Circulatory collapse [Fatal]
  - Coronary artery disease [Fatal]
  - Drug level increased [Fatal]
